FAERS Safety Report 7592013-6 (Version None)
Quarter: 2011Q3

REPORT INFORMATION
  Report Type: 
  Country: None (occurrence: None)
  Receive Date: 20110706
  Receipt Date: 20110701
  Transmission Date: 20111222
  Serious: Yes (Death)
  Sender: FDA-Public Use
  Company Number: US-SANOFI-AVENTIS-2011SA042426

PATIENT
  Age: 78 Year
  Sex: Female

DRUGS (1)
  1. LOVENOX [Suspect]
     Indication: PULMONARY EMBOLISM
     Route: 065
     Dates: start: 20110522

REACTIONS (1)
  - DEATH [None]
